FAERS Safety Report 14650920 (Version 5)
Quarter: 2018Q3

REPORT INFORMATION
  Report Type: Report from Study
  Country: JP (occurrence: JP)
  Receive Date: 20180316
  Receipt Date: 20180704
  Transmission Date: 20181010
  Serious: Yes (Hospitalization, Other)
  Sender: FDA-Public Use
  Company Number: JP-TAKEDA-2018MPI002781

PATIENT
  Age: 66 Year
  Sex: Female
  Weight: 44 kg

DRUGS (6)
  1. DEXAMETHASONE. [Concomitant]
     Active Substance: DEXAMETHASONE
     Indication: PLASMA CELL MYELOMA
     Dosage: 20 MG, 1/WEEK
     Route: 048
     Dates: start: 20180125, end: 20180125
  2. DARZALEX [Suspect]
     Active Substance: DARATUMUMAB
     Dosage: 16 MG/KG, 1/WEEK
     Route: 041
     Dates: start: 20180207, end: 20180301
  3. DEXAMETHASONE. [Concomitant]
     Active Substance: DEXAMETHASONE
     Dosage: 20 MG, 1/WEEK
     Route: 048
     Dates: start: 20180208
  4. VELCADE [Suspect]
     Active Substance: BORTEZOMIB
     Indication: PLASMA CELL MYELOMA
     Dosage: 1.3 MG/M2, 1/WEEK
     Route: 058
     Dates: start: 20180124, end: 20180124
  5. VELCADE [Suspect]
     Active Substance: BORTEZOMIB
     Dosage: 1.3 MG/M2, 1/WEEK
     Route: 058
     Dates: start: 20180207
  6. DARZALEX [Suspect]
     Active Substance: DARATUMUMAB
     Indication: PLASMA CELL MYELOMA
     Dosage: 16 MG/KG, 1/WEEK
     Route: 041
     Dates: start: 20180124, end: 20180124

REACTIONS (6)
  - Jaundice cholestatic [Recovered/Resolved]
  - Haemobilia [Recovered/Resolved]
  - Neutrophil count decreased [Recovered/Resolved]
  - Pancreatic duct obstruction [Recovered/Resolved]
  - Platelet count decreased [Not Recovered/Not Resolved]
  - Pancreatitis acute [Recovered/Resolved]

NARRATIVE: CASE EVENT DATE: 20180125
